FAERS Safety Report 5013939-3 (Version None)
Quarter: 2006Q2

REPORT INFORMATION
  Report Type: 
  Country: None (occurrence: None)
  Receive Date: 20060525
  Receipt Date: 20060512
  Transmission Date: 20061013
  Serious: Yes (Hospitalization)
  Sender: FDA-Public Use
  Company Number: 225183

PATIENT
  Age: 75 Year
  Sex: Male

DRUGS (4)
  1. MABTHERA [Suspect]
     Indication: NON-HODGKIN'S LYMPHOMA
     Dosage: 675 MG
     Dates: start: 20060103, end: 20060329
  2. CYCLOPHOSPHAMIDE [Suspect]
     Indication: NON-HODGKIN'S LYMPHOMA
     Dosage: 1350 MG
     Dates: start: 20060104, end: 20060329
  3. VINCRISTINE [Suspect]
     Indication: NON-HODGKIN'S LYMPHOMA
     Dosage: 2 MG
     Dates: start: 20060104, end: 20060307
  4. ADRIAMYCIN PFS [Suspect]
     Indication: NON-HODGKIN'S LYMPHOMA
     Dosage: 80 MG
     Dates: start: 20060104, end: 20060329

REACTIONS (14)
  - CROHN'S DISEASE [None]
  - DIVERTICULUM [None]
  - GASTROINTESTINAL DISORDER [None]
  - GASTROINTESTINAL HAEMORRHAGE [None]
  - HAEMATOCHEZIA [None]
  - HAEMOGLOBIN DECREASED [None]
  - HAEMORRHAGE [None]
  - HAEMORRHOIDS [None]
  - ILEITIS [None]
  - MELAENA [None]
  - REFLUX OESOPHAGITIS [None]
  - TACHYARRHYTHMIA [None]
  - TACHYCARDIA [None]
  - VASODILATATION [None]
